FAERS Safety Report 9276413 (Version 1)
Quarter: 2013Q1

REPORT INFORMATION
  Report Type: Spontaneous
  Country: JP (occurrence: None)
  Receive Date: 20121109
  Receipt Date: 20121109
  Transmission Date: 20140127
  Serious: Yes (Hospitalization)
  Sender: FDA-Public Use
  Company Number: 2012S1000323

PATIENT
  Age: 39 Year
  Sex: Female
  Weight: 97 kg

DRUGS (10)
  1. CUBICIN (DAPTOMYCIN) [Suspect]
     Indication: STAPHYLOCOCCAL OSTEOMYELITIS
     Route: 041
     Dates: start: 20120315, end: 20120326
  2. LOXOPROFEN [Concomitant]
  3. MUCOSTA [Concomitant]
  4. AMLODIPINE [Concomitant]
  5. AMLODIN [Concomitant]
  6. HEPARINOID [Concomitant]
  7. PREDNISOLONE [Concomitant]
  8. KENALOG [Concomitant]
  9. ALL OTHER THERAPEUTIC PRODUCTS [Concomitant]
  10. ADEFURONIC [Concomitant]

REACTIONS (12)
  - White blood cell count decreased [None]
  - Neutrophil count decreased [None]
  - Platelet count decreased [None]
  - Eczema [None]
  - Stomatitis [None]
  - Liver disorder [None]
  - Erythema [None]
  - Pyrexia [None]
  - Dry skin [None]
  - Off label use [None]
  - Vomiting [None]
  - Decreased appetite [None]
